FAERS Safety Report 17745639 (Version 1)
Quarter: 2020Q2

REPORT INFORMATION
  Report Type: Spontaneous
  Country: US (occurrence: US)
  Receive Date: 20200505
  Receipt Date: 20200505
  Transmission Date: 20200714
  Serious: No
  Sender: FDA-Public Use
  Company Number: None

PATIENT
  Age: 38 Year
  Sex: Male
  Weight: 144 kg

DRUGS (1)
  1. ROSUVASTATIN (ROSUVASTATIN CA 20MG TAB) [Suspect]
     Active Substance: ROSUVASTATIN
     Indication: HYPERLIPIDAEMIA
     Route: 048
     Dates: start: 20191213, end: 20200324

REACTIONS (5)
  - Myalgia [None]
  - Muscle spasms [None]
  - Abdominal pain [None]
  - Blood creatine phosphokinase increased [None]
  - Therapy change [None]

NARRATIVE: CASE EVENT DATE: 20200221
